FAERS Safety Report 9775388 (Version 4)
Quarter: 2014Q1

REPORT INFORMATION
  Report Type: Spontaneous
  Country: CH (occurrence: CH)
  Receive Date: 20131220
  Receipt Date: 20140313
  Transmission Date: 20141002
  Serious: Yes (Hospitalization, Other)
  Sender: FDA-Public Use
  Company Number: CH-JNJFOC-20131209126

PATIENT
  Age: 38 Year
  Sex: Female

DRUGS (8)
  1. REMICADE [Suspect]
     Indication: CROHN^S DISEASE
     Route: 042
  2. METHOTREXATE [Suspect]
     Indication: CROHN^S DISEASE
     Route: 058
  3. LAMICTAL [Concomitant]
     Indication: PSYCHOTIC DISORDER
     Dosage: DOSE: 200MG HALF A TABLET, ONCE DAY
     Route: 048
  4. ESOMEPRAZOLE [Concomitant]
     Route: 048
  5. OLANZAPINE [Concomitant]
     Indication: PSYCHOTIC DISORDER
     Dosage: 10MG, 2 DOSE UNITS.
     Route: 048
  6. QUILONORM [Concomitant]
     Indication: PSYCHOTIC DISORDER
     Dosage: TOTAL DAILY DOSE: 1608MG
     Route: 048
  7. SERETIDE [Concomitant]
     Indication: ASTHMA
     Route: 065
  8. SALAZOPYRIN [Concomitant]
     Indication: CROHN^S DISEASE
     Dosage: 500MG, 2 DOSAGES TWICE A DAY. TOTAL DAILY DOSE: 2000MG.
     Route: 048

REACTIONS (1)
  - Myelitis [Recovered/Resolved]
